FAERS Safety Report 4711156-5 (Version None)
Quarter: 2005Q3

REPORT INFORMATION
  Report Type: 
  Country: None (occurrence: None)
  Receive Date: 20050708
  Receipt Date: 20050706
  Transmission Date: 20060218
  Serious: Yes (Disabling)
  Sender: FDA-Public Use
  Company Number: SEWYE802906JUL05

PATIENT
  Age: 48 Year
  Sex: Female

DRUGS (27)
  1. EFFEXOR XR [Suspect]
     Indication: ALCOHOLISM
     Dosage: 75 + 150 + 225 + 150  MG PER DAY- SEE IMAGE
     Route: 048
     Dates: start: 20050530, end: 20050602
  2. EFFEXOR XR [Suspect]
     Indication: BIPOLAR I DISORDER
     Dosage: 75 + 150 + 225 + 150  MG PER DAY- SEE IMAGE
     Route: 048
     Dates: start: 20050530, end: 20050602
  3. EFFEXOR XR [Suspect]
     Indication: PERSONALITY DISORDER
     Dosage: 75 + 150 + 225 + 150  MG PER DAY- SEE IMAGE
     Route: 048
     Dates: start: 20050530, end: 20050602
  4. EFFEXOR XR [Suspect]
     Indication: ALCOHOLISM
     Dosage: 75 + 150 + 225 + 150  MG PER DAY- SEE IMAGE
     Route: 048
     Dates: start: 20050602, end: 20050606
  5. EFFEXOR XR [Suspect]
     Indication: BIPOLAR I DISORDER
     Dosage: 75 + 150 + 225 + 150  MG PER DAY- SEE IMAGE
     Route: 048
     Dates: start: 20050602, end: 20050606
  6. EFFEXOR XR [Suspect]
     Indication: PERSONALITY DISORDER
     Dosage: 75 + 150 + 225 + 150  MG PER DAY- SEE IMAGE
     Route: 048
     Dates: start: 20050602, end: 20050606
  7. EFFEXOR XR [Suspect]
     Indication: ALCOHOLISM
     Dosage: 75 + 150 + 225 + 150  MG PER DAY- SEE IMAGE
     Route: 048
     Dates: start: 20050606, end: 20050613
  8. EFFEXOR XR [Suspect]
     Indication: BIPOLAR I DISORDER
     Dosage: 75 + 150 + 225 + 150  MG PER DAY- SEE IMAGE
     Route: 048
     Dates: start: 20050606, end: 20050613
  9. EFFEXOR XR [Suspect]
     Indication: PERSONALITY DISORDER
     Dosage: 75 + 150 + 225 + 150  MG PER DAY- SEE IMAGE
     Route: 048
     Dates: start: 20050606, end: 20050613
  10. EFFEXOR XR [Suspect]
     Indication: ALCOHOLISM
     Dosage: 75 + 150 + 225 + 150  MG PER DAY- SEE IMAGE
     Route: 048
     Dates: start: 20050613, end: 20050614
  11. EFFEXOR XR [Suspect]
     Indication: BIPOLAR I DISORDER
     Dosage: 75 + 150 + 225 + 150  MG PER DAY- SEE IMAGE
     Route: 048
     Dates: start: 20050613, end: 20050614
  12. EFFEXOR XR [Suspect]
     Indication: PERSONALITY DISORDER
     Dosage: 75 + 150 + 225 + 150  MG PER DAY- SEE IMAGE
     Route: 048
     Dates: start: 20050613, end: 20050614
  13. LAMICTAL [Concomitant]
     Dosage: SEE IMAGE
  14. OXAZEPAM [Concomitant]
  15. TENOX      (TEMAZEPAM) [Concomitant]
  16. CIPRALEX (ESCITALOPRAM) [Concomitant]
  17. TEVETEN [Concomitant]
  18. RENITEC                  (ENLAPRIL) [Concomitant]
  19. BURANA  (IBUPROFEN) [Concomitant]
  20. LORAZEPAM [Concomitant]
  21. LEVOZIN          (LEVOPROMAZINE) [Concomitant]
  22. REMERON [Concomitant]
  23. PAROXETINE HCL [Concomitant]
  24. ..................... [Concomitant]
  25. .............................. [Concomitant]
  26. .................. [Concomitant]
  27. .............................. [Concomitant]

REACTIONS (1)
  - ANOSMIA [None]
